FAERS Safety Report 17448518 (Version 2)
Quarter: 2020Q1

REPORT INFORMATION
  Report Type: Report from Study
  Country: None (occurrence: US)
  Receive Date: 20200224
  Receipt Date: 20200302
  Transmission Date: 20200409
  Serious: Yes (Death, Hospitalization, Other)
  Sender: FDA-Public Use
  Company Number: US-ABBVIE-20K-163-3287527-00

PATIENT
  Age: 86 Year
  Sex: Male

DRUGS (3)
  1. CALQUENCE [Concomitant]
     Active Substance: ACALABRUTINIB
     Indication: CHRONIC LYMPHOCYTIC LEUKAEMIA
     Route: 048
     Dates: start: 20200203, end: 20200208
  2. CALQUENCE [Concomitant]
     Active Substance: ACALABRUTINIB
     Route: 048
     Dates: start: 20200208, end: 20200226
  3. VENCLEXTA [Suspect]
     Active Substance: VENETOCLAX
     Indication: CHRONIC LYMPHOCYTIC LEUKAEMIA
     Route: 048
     Dates: start: 20190503, end: 20200203

REACTIONS (3)
  - Death [Fatal]
  - Cerebrovascular accident [Unknown]
  - Pyrexia [Unknown]

NARRATIVE: CASE EVENT DATE: 202002
